FAERS Safety Report 15623475 (Version 4)
Quarter: 2019Q1

REPORT INFORMATION
  Report Type: Spontaneous
  Country: US (occurrence: US)
  Receive Date: 20181115
  Receipt Date: 20190319
  Transmission Date: 20190417
  Serious: No
  Sender: FDA-Public Use
  Company Number: US-PFIZER INC-2018470378

PATIENT
  Age: 34 Year
  Sex: Female
  Weight: 83.91 kg

DRUGS (3)
  1. GABAPENTIN. [Suspect]
     Active Substance: GABAPENTIN
     Dosage: 900 MG, 3X/DAY (900 MG TID)/(1.5 OF 600MG TABLETS)
  2. GABAPENTIN. [Suspect]
     Active Substance: GABAPENTIN
     Dosage: 600 MG, UNK
  3. GABAPENTIN. [Suspect]
     Active Substance: GABAPENTIN
     Indication: FIBROMYALGIA
     Dosage: 1200 MG, 3X/DAY

REACTIONS (2)
  - Drug ineffective for unapproved indication [Unknown]
  - Renal disorder [Unknown]
